FAERS Safety Report 18150162 (Version 3)
Quarter: 2020Q3

REPORT INFORMATION
  Report Type: Spontaneous
  Country: CO (occurrence: CO)
  Receive Date: 20200814
  Receipt Date: 20200820
  Transmission Date: 20201103
  Serious: Yes (Life-Threatening, Hospitalization, Other)
  Sender: FDA-Public Use
  Company Number: CO-PFIZER INC-2020310368

PATIENT
  Age: 16 Year
  Sex: Male

DRUGS (3)
  1. DOXYCYCLINE HYCLATE. [Suspect]
     Active Substance: DOXYCYCLINE HYCLATE
     Dosage: 10 DF, SINGLE
     Route: 048
  2. PROPRANOLOL [Suspect]
     Active Substance: PROPRANOLOL HYDROCHLORIDE
     Dosage: 30 DF, SINGLE
     Route: 048
  3. PARACETAMOL [Suspect]
     Active Substance: ACETAMINOPHEN
     Dosage: 24 DF, SINGLE
     Route: 048

REACTIONS (4)
  - Toxicity to various agents [Recovered/Resolved]
  - Atrioventricular block first degree [Recovered/Resolved]
  - Intentional overdose [Recovered/Resolved]
  - Bradycardia [Recovered/Resolved]
